FAERS Safety Report 4449526-5 (Version None)
Quarter: 2004Q3

REPORT INFORMATION
  Report Type: 
  Country: None (occurrence: None)
  Receive Date: 20040914
  Receipt Date: 20040705
  Transmission Date: 20050211
  Serious: Yes (Life-Threatening)
  Sender: FDA-Public Use
  Company Number: 200412622FR

PATIENT
  Age: 78 Year
  Sex: Male
  Weight: 72 kg

DRUGS (6)
  1. RIFADIN [Suspect]
     Indication: INTERVERTEBRAL DISCITIS
     Route: 048
     Dates: end: 20040606
  2. TARGOCID [Suspect]
     Indication: INTERVERTEBRAL DISCITIS
     Dates: end: 20040606
  3. ATHYMIL [Suspect]
     Route: 048
     Dates: end: 20040606
  4. ACETAMINOPHEN [Concomitant]
     Route: 048
  5. PREVISCAN [Concomitant]
     Route: 048
  6. FORLAX [Concomitant]
     Route: 048

REACTIONS (2)
  - AGRANULOCYTOSIS [None]
  - PYREXIA [None]
